FAERS Safety Report 6930952-7 (Version None)
Quarter: 2010Q3

REPORT INFORMATION
  Report Type: 
  Country: None (occurrence: None)
  Receive Date: 20100817
  Receipt Date: 20100817
  Transmission Date: 20110219
  Serious: Yes (Other)
  Sender: FDA-Public Use
  Company Number: None

PATIENT
  Age: 66 Year
  Sex: Female
  Weight: 81.8 kg

DRUGS (1)
  1. OPTIRAY 160 [Suspect]
     Indication: VENA CAVA FILTER INSERTION
     Dates: start: 20100129

REACTIONS (3)
  - ERYTHEMA [None]
  - HYPERCAPNIA [None]
  - HYPOTENSION [None]
